FAERS Safety Report 6626260-4 (Version None)
Quarter: 2010Q1

REPORT INFORMATION
  Report Type: 
  Country: None (occurrence: None)
  Receive Date: 20100309
  Receipt Date: 20100309
  Transmission Date: 20100710
  Serious: Yes (Disabling)
  Sender: FDA-Public Use
  Company Number: None

PATIENT
  Age: 84 Year
  Sex: Female
  Weight: 56 kg

DRUGS (2)
  1. VANCOMYCIN [Suspect]
     Indication: CHRONIC OBSTRUCTIVE PULMONARY DISEASE
     Dosage: 1500GM Q24H IV
     Route: 042
     Dates: start: 20100222, end: 20100228
  2. VANCOMYCIN [Suspect]
     Indication: PNEUMONIA
     Dosage: 1500GM Q24H IV
     Route: 042
     Dates: start: 20100222, end: 20100228

REACTIONS (2)
  - ERYTHEMA [None]
  - PRURITUS [None]
